FAERS Safety Report 9752391 (Version 1)
Quarter: 2013Q4

REPORT INFORMATION
  Report Type: Spontaneous
  Country: US (occurrence: US)
  Receive Date: 20131213
  Receipt Date: 20131213
  Transmission Date: 20140711
  Serious: No
  Sender: FDA-Public Use
  Company Number: US-PFIZER INC-2013355117

PATIENT
  Sex: Female

DRUGS (3)
  1. CELEBREX [Suspect]
     Dosage: 200 MG, 2X/DAY
  2. CELEBREX [Suspect]
     Dosage: 200 MG, 1X/DAY
  3. ZOLOFT [Suspect]
     Dosage: UNK

REACTIONS (4)
  - Incorrect dosage administered [Unknown]
  - Drug effect incomplete [Unknown]
  - Pain [Unknown]
  - Mobility decreased [Unknown]
